FAERS Safety Report 6804933-8 (Version None)
Quarter: 2010Q2

REPORT INFORMATION
  Report Type: 
  Country: None (occurrence: None)
  Receive Date: 20100628
  Receipt Date: 20070829
  Transmission Date: 20101027
  Serious: No
  Sender: FDA-Public Use
  Company Number: US-PFIZER INC-2007056500

PATIENT
  Sex: Female

DRUGS (4)
  1. XALATAN [Suspect]
     Indication: GLAUCOMA
     Dates: start: 20070706, end: 20070707
  2. VALSARTAN [Concomitant]
     Indication: HYPERTENSION
  3. BENADRYL [Concomitant]
     Indication: HYPERSENSITIVITY
  4. VITAMINS [Concomitant]

REACTIONS (4)
  - ABDOMINAL DISCOMFORT [None]
  - ANXIETY [None]
  - INSOMNIA [None]
  - PRURITUS [None]
